FAERS Safety Report 10703030 (Version 2)
Quarter: 2015Q1

REPORT INFORMATION
  Report Type: Spontaneous
  Country: US (occurrence: US)
  Receive Date: 20150111
  Receipt Date: 20150213
  Transmission Date: 20150721
  Serious: No
  Sender: FDA-Public Use
  Company Number: US-009507513-1412USA008747

PATIENT
  Age: 76 Year
  Sex: Male

DRUGS (12)
  1. PRINIVIL [Concomitant]
     Active Substance: LISINOPRIL
     Route: 048
  2. ASPIRIN. [Concomitant]
     Active Substance: ASPIRIN
  3. APIXABAN [Concomitant]
     Active Substance: APIXABAN
  4. LACTULOSE. [Concomitant]
     Active Substance: LACTULOSE
  5. SPIRONOLACTONE. [Concomitant]
     Active Substance: SPIRONOLACTONE
  6. TEMODAR [Suspect]
     Active Substance: TEMOZOLOMIDE
     Indication: NEUROENDOCRINE TUMOUR
     Dosage: 2 CAPSULES DAILY AT BEDTIME
     Route: 048
     Dates: start: 20141205, end: 20141211
  7. ATORVASTATIN [Concomitant]
     Active Substance: ATORVASTATIN
  8. CYANOCOBALAMIN. [Concomitant]
     Active Substance: CYANOCOBALAMIN
  9. OXYCODONE [Concomitant]
     Active Substance: OXYCODONE
  10. AMIODARONE [Concomitant]
     Active Substance: AMIODARONE
  11. CARVEDILOL. [Concomitant]
     Active Substance: CARVEDILOL
  12. FOLIC ACID. [Concomitant]
     Active Substance: FOLIC ACID

REACTIONS (1)
  - Rash generalised [Recovering/Resolving]

NARRATIVE: CASE EVENT DATE: 201412
